FAERS Safety Report 7269194-7 (Version None)
Quarter: 2011Q1

REPORT INFORMATION
  Report Type: 
  Country: None (occurrence: None)
  Receive Date: 20110119
  Receipt Date: 20110112
  Transmission Date: 20110831
  Serious: Yes (Other)
  Sender: FDA-Public Use
  Company Number: 2010022111

PATIENT
  Weight: 38.5557 kg

DRUGS (1)
  1. VIVAGLOBIN [Suspect]
     Indication: HUMORAL IMMUNE DEFECT
     Dosage: (7.36 G, 7.36 GRAMS (46 ML) WEEKLY IN 2 SITES OVER 2 HOURS SUBCUTANEOUS)
     Route: 058
     Dates: start: 20090401

REACTIONS (2)
  - WEIGHT DECREASED [None]
  - ULCER HAEMORRHAGE [None]
